FAERS Safety Report 25524787 (Version 3)
Quarter: 2025Q3

REPORT INFORMATION
  Report Type: Spontaneous
  Country: US (occurrence: US)
  Receive Date: 20250707
  Receipt Date: 20250717
  Transmission Date: 20251020
  Serious: Yes (Other)
  Sender: PFIZER
  Company Number: US-PFIZER INC-PV202500079582

PATIENT
  Age: 61 Year
  Sex: Male
  Weight: 102.04 kg

DRUGS (5)
  1. BRAFTOVI [Suspect]
     Active Substance: ENCORAFENIB
     Indication: Malignant melanoma
     Dosage: 300 MG, DAILY (4 CAPS ON DAY 1 AND DAY 2)
     Route: 048
     Dates: start: 20250608
  2. BRAFTOVI [Suspect]
     Active Substance: ENCORAFENIB
     Dosage: 375 MG, DAILY (5 CAPS ON DAY 3)
     Route: 048
     Dates: start: 20250610, end: 2025
  3. TESTOSTERONE [Concomitant]
     Active Substance: TESTOSTERONE
  4. COLECALCIFEROL/MENAQUINONE [Concomitant]
  5. VITAMINS [Concomitant]
     Active Substance: VITAMINS

REACTIONS (8)
  - Myalgia [Recovered/Resolved]
  - Arthralgia [Recovered/Resolved]
  - Pruritus [Recovered/Resolved]
  - Blister [Recovered/Resolved]
  - Swelling face [Recovered/Resolved]
  - Swelling [Recovered/Resolved]
  - Chromaturia [Recovered/Resolved]
  - Off label use [Unknown]

NARRATIVE: CASE EVENT DATE: 20250601
